FAERS Safety Report 11746166 (Version 1)
Quarter: 2015Q4

REPORT INFORMATION
  Report Type: Spontaneous
  Country: US (occurrence: None)
  Receive Date: 20151116
  Receipt Date: 20151116
  Transmission Date: 20160304
  Serious: Yes (Other)
  Sender: FDA-Public Use
  Company Number: None

PATIENT
  Age: 59 Year
  Sex: Female
  Weight: 87.54 kg

DRUGS (11)
  1. BENADRYL [Concomitant]
     Active Substance: DIPHENHYDRAMINE HYDROCHLORIDE
  2. GENERIC MAXITROL SANDOZ 0.1% OINTMENT FALCON OPH [Suspect]
     Active Substance: DEXAMETHASONE\NEOMYCIN SULFATE\POLYMYXIN B SULFATE
     Indication: EYE PRURITUS
     Dosage: APPLY AT BEDTIME; APPLIED TO A SURFACE, USUALLY THE SKIN
     Route: 061
     Dates: start: 20151103, end: 20151105
  3. METOPROLOL [Concomitant]
     Active Substance: METOPROLOL
  4. NITRO [Concomitant]
     Active Substance: NITROGLYCERIN
  5. ASPIRIN. [Concomitant]
     Active Substance: ASPIRIN
  6. GENERIC MAXITROL SANDOZ 0.1% OINTMENT FALCON OPH [Suspect]
     Active Substance: DEXAMETHASONE\NEOMYCIN SULFATE\POLYMYXIN B SULFATE
     Indication: EYE IRRITATION
     Dosage: APPLY AT BEDTIME; APPLIED TO A SURFACE, USUALLY THE SKIN
     Route: 061
     Dates: start: 20151103, end: 20151105
  7. LONG LASTING INSULIN [Concomitant]
  8. IBUPROPHEN [Concomitant]
     Active Substance: IBUPROFEN
  9. VITAMIN D [Concomitant]
     Active Substance: CHOLECALCIFEROL
  10. CANE [Concomitant]
  11. LISINOPRIL. [Concomitant]
     Active Substance: LISINOPRIL

REACTIONS (4)
  - Eye pain [None]
  - Headache [None]
  - Rhinalgia [None]
  - Eyelid disorder [None]

NARRATIVE: CASE EVENT DATE: 20151103
